FAERS Safety Report 5048189-8 (Version None)
Quarter: 2006Q3

REPORT INFORMATION
  Report Type: 
  Country: None (occurrence: None)
  Receive Date: 20060711
  Receipt Date: 20060606
  Transmission Date: 20061208
  Serious: Yes (Life-Threatening, Hospitalization)
  Sender: FDA-Public Use
  Company Number: CN-ROCHE-450768

PATIENT
  Age: 40 Year
  Sex: Male
  Weight: 70 kg

DRUGS (2)
  1. ROFERON-A [Suspect]
     Dosage: STRENGTH REPORTED AS ^3 MILLION IU/VIAL^ DOSAGE REGIMEN: 3 MILLIONIU/2 DAY
     Route: 058
     Dates: start: 20060526, end: 20060528
  2. PROLEUKIN [Concomitant]
     Dosage: DRUG NAME REPORTED AS QUAN QI STRENGTH REPORTED AS ^2 MILLION IU/VIAL^ DOSAGE REGIMEN REPORTED AS 2+
     Route: 058
     Dates: start: 20060525, end: 20060527

REACTIONS (1)
  - LOWER MOTOR NEURONE LESION [None]
